FAERS Safety Report 19120959 (Version 1)
Quarter: 2021Q2

REPORT INFORMATION
  Report Type: Spontaneous
  Country: HU (occurrence: HU)
  Receive Date: 20210412
  Receipt Date: 20210412
  Transmission Date: 20210717
  Serious: Yes (Other)
  Sender: FDA-Public Use
  Company Number: HU-BRISTOL-MYERS SQUIBB COMPANY-BMS-2021-032304

PATIENT
  Sex: Female

DRUGS (4)
  1. KENALOG [Suspect]
     Active Substance: TRIAMCINOLONE ACETONIDE
     Indication: THERMAL BURN
     Dosage: 40 MG/ML, PER DAY
     Route: 065
     Dates: start: 20200703, end: 20200703
  2. KENALOG [Suspect]
     Active Substance: TRIAMCINOLONE ACETONIDE
     Dosage: 40 MG/ML, PER DAY
     Route: 065
     Dates: start: 2020, end: 2020
  3. LEVOTHYROXINE. [Concomitant]
     Active Substance: LEVOTHYROXINE
     Indication: HYPOTHYROIDISM
     Dosage: 50 MICROGRAM, QD
     Route: 065
  4. KENALOG [Suspect]
     Active Substance: TRIAMCINOLONE ACETONIDE
     Indication: ABSCESS
     Dosage: 40 MG/ML, PER DAY
     Route: 065
     Dates: start: 20200803, end: 20200803

REACTIONS (8)
  - Melanocytic naevus [Not Recovered/Not Resolved]
  - Petechiae [Not Recovered/Not Resolved]
  - Basal cell carcinoma [Not Recovered/Not Resolved]
  - Androgenetic alopecia [Not Recovered/Not Resolved]
  - Haematoma [Not Recovered/Not Resolved]
  - Telangiectasia [Not Recovered/Not Resolved]
  - Lipoma [Not Recovered/Not Resolved]
  - Atrophy [Not Recovered/Not Resolved]

NARRATIVE: CASE EVENT DATE: 202006
